FAERS Safety Report 4897630-X (Version None)
Quarter: 2006Q1

REPORT INFORMATION
  Report Type: 
  Country: None (occurrence: None)
  Receive Date: 20060130
  Receipt Date: 20060130
  Transmission Date: 20060701
  Serious: Yes (Life-Threatening, Hospitalization)
  Sender: FDA-Public Use
  Company Number: None

PATIENT
  Age: 58 Year
  Sex: Male
  Weight: 121.8 kg

DRUGS (30)
  1. LISINOPRIL [Suspect]
  2. INFLUENZA VIRUS VACCINE INJ [Concomitant]
  3. LITHIUM CARBONATE [Concomitant]
  4. LEVOTHYROXINE SODIUM [Concomitant]
  5. KETOCONAZOLE [Concomitant]
  6. NPH INSULIN [Concomitant]
  7. HALOPERIDOL [Concomitant]
  8. GABAPENTIN [Concomitant]
  9. FUROSEMIDE [Concomitant]
  10. FELODIPINE [Concomitant]
  11. COAL TAR5/SAL AC 2/SULFUR 2% SHAMPOO [Concomitant]
  12. CLOPIDOGREL [Concomitant]
  13. SIMETHICONE [Concomitant]
  14. ENEMA, PHOSPHATE EDEMA [Concomitant]
  15. BISACODYL SUPP [Concomitant]
  16. ACETAMINOPHEN [Concomitant]
  17. LORAZEPAM [Concomitant]
  18. SILVER SULFADIAZINE [Concomitant]
  19. CEFPOSOXIME [Concomitant]
  20. SODIUM CHLORIDE [Concomitant]
  21. SIMVASTATIN [Concomitant]
  22. ROSIGLITAZONE [Concomitant]
  23. PAROXETINE HCL [Concomitant]
  24. MILK OF MAGNESIA TAB [Concomitant]
  25. FLUNISOLIDE INHL [Concomitant]
  26. SODIUM CHLORIDE [Concomitant]
  27. IPRATROPIUM BROMIDE [Concomitant]
  28. INSULIN REG HUMAN 100 U/ML INJ NOVOLIN R [Concomitant]
  29. ALBUTEROL [Concomitant]
  30. CEFTRIAXONE [Concomitant]

REACTIONS (1)
  - ARRHYTHMIA [None]
